FAERS Safety Report 15918863 (Version 1)
Quarter: 2019Q1

REPORT INFORMATION
  Report Type: Spontaneous
  Country: DE (occurrence: DE)
  Receive Date: 20190205
  Receipt Date: 20190205
  Transmission Date: 20190417
  Serious: Yes (Other)
  Sender: FDA-Public Use
  Company Number: DE-BAUSCH-BL-2019-002826

PATIENT
  Age: 66 Year
  Sex: Female

DRUGS (3)
  1. TIMOPTIC [Suspect]
     Active Substance: TIMOLOL MALEATE
     Indication: GLAUCOMA
     Route: 065
  2. CLONID OPHTAL 1/8% SINE [Suspect]
     Active Substance: CLONIDINE HYDROCHLORIDE
     Indication: GLAUCOMA
     Route: 065
  3. TAFLOTAN [Suspect]
     Active Substance: TAFLUPROST
     Indication: GLAUCOMA
     Dosage: EVENINGS
     Route: 065

REACTIONS (5)
  - Syncope [Unknown]
  - Deafness [Unknown]
  - Hypotension [Unknown]
  - Tinnitus [Unknown]
  - Paraesthesia [Unknown]
